FAERS Safety Report 7357896-3 (Version None)
Quarter: 2011Q1

REPORT INFORMATION
  Report Type: 
  Country: None (occurrence: None)
  Receive Date: 20110309
  Receipt Date: 20110225
  Transmission Date: 20110831
  Serious: Yes (Other)
  Sender: FDA-Public Use
  Company Number: DSJ-2010-20797

PATIENT
  Age: 59 Year
  Sex: Female

DRUGS (10)
  1. LEVOTHYROXINE SODIUM [Concomitant]
  2. DEFLAZACORT [Concomitant]
  3. AMLODIPINE [Suspect]
     Indication: HYPERTENSION
     Dosage: 5 MG,PER ORAL
     Route: 048
     Dates: start: 20100901, end: 20100901
  4. SOTALOL [Concomitant]
  5. AMITRIPTYLINE [Concomitant]
  6. CYCLOBENZAPRINE [Concomitant]
  7. ROSUVASTATIN [Suspect]
     Indication: HYPERCHOLESTEROLAEMIA
     Dosage: 10 MG, PER ORAL
     Route: 048
     Dates: start: 20101001
  8. FAMOTIDINE [Concomitant]
  9. METFORMIN HCL [Concomitant]
  10. AMLODIPINE BESYLATE AND OLMESARTAN MEDOXOMIL [Suspect]
     Indication: HYPERTENSION
     Dosage: 140/5 MG (1 IN 1 D), PER ORAL
     Route: 048
     Dates: start: 20101022

REACTIONS (4)
  - DRUG INEFFECTIVE [None]
  - FOOT FRACTURE [None]
  - HYPERCHOLESTEROLAEMIA [None]
  - OEDEMA PERIPHERAL [None]
